FAERS Safety Report 25644250 (Version 1)
Quarter: 2025Q3

REPORT INFORMATION
  Report Type: Spontaneous
  Country: EU (occurrence: EU)
  Receive Date: 20250805
  Receipt Date: 20250805
  Transmission Date: 20251021
  Serious: Yes (Other)
  Sender: BAYER HEALTHCARE PHARMACEUTICALS INC.
  Company Number: EU-BAYER-2025A101014

PATIENT
  Age: 44 Year
  Sex: Female

DRUGS (1)
  1. NUBEQA [Suspect]
     Active Substance: DAROLUTAMIDE
     Indication: Triple negative breast cancer
     Dates: start: 202003, end: 202110

REACTIONS (4)
  - Oophorectomy [None]
  - Ovarian injury [None]
  - Product use issue [None]
  - Product use in unapproved indication [None]

NARRATIVE: CASE EVENT DATE: 20200301
